FAERS Safety Report 18664599 (Version 7)
Quarter: 2022Q3

REPORT INFORMATION
  Report Type: Spontaneous
  Country: GB (occurrence: GB)
  Receive Date: 20201225
  Receipt Date: 20220915
  Transmission Date: 20221026
  Serious: Yes (Other)
  Sender: FDA-Public Use
  Company Number: GB-BIOVITRUM-2020GB7891

PATIENT
  Age: 68 Year
  Sex: Male

DRUGS (83)
  1. ORFADIN [Suspect]
     Active Substance: NITISINONE
     Indication: Alkaptonuria
     Dosage: 2 MG
     Dates: start: 2012
  2. ORFADIN [Suspect]
     Active Substance: NITISINONE
     Dosage: 2 MG
     Dates: start: 2013
  3. ORFADIN [Suspect]
     Active Substance: NITISINONE
     Dosage: 2 MG
     Dates: start: 2014
  4. ORFADIN [Suspect]
     Active Substance: NITISINONE
     Dosage: 2 MG
     Dates: start: 2015
  5. ORFADIN [Suspect]
     Active Substance: NITISINONE
     Dosage: 2 MG
     Dates: start: 2016
  6. ORFADIN [Suspect]
     Active Substance: NITISINONE
     Dosage: 2 MG
     Dates: start: 2017
  7. ORFADIN [Suspect]
     Active Substance: NITISINONE
     Dosage: 2 MG
     Dates: start: 2018
  8. ORFADIN [Suspect]
     Active Substance: NITISINONE
     Dosage: 2 MG
     Dates: start: 2019
  9. OMEPRAZOLE [Concomitant]
     Active Substance: OMEPRAZOLE
     Dosage: 20 MG
     Dates: start: 2012
  10. DICLOFENAC [Concomitant]
     Active Substance: DICLOFENAC
     Dosage: 75 MG
     Dates: start: 2012
  11. SUDOCREAM [Concomitant]
     Dates: start: 2012
  12. DIHYDROCODEINE [Concomitant]
     Active Substance: DIHYDROCODEINE
     Dosage: 30 MG
     Dates: start: 2012
  13. DIHYDROCODEINE [Concomitant]
     Active Substance: DIHYDROCODEINE
     Dosage: 30 MG
     Dates: start: 2013
  14. DIHYDROCODEINE [Concomitant]
     Active Substance: DIHYDROCODEINE
     Dosage: 30 MG
     Dates: start: 2014
  15. DIHYDROCODEINE [Concomitant]
     Active Substance: DIHYDROCODEINE
     Dates: start: 2014
  16. DIHYDROCODEINE [Concomitant]
     Active Substance: DIHYDROCODEINE
     Dosage: 30 MG
     Dates: start: 2015
  17. DIHYDROCODEINE [Concomitant]
     Active Substance: DIHYDROCODEINE
     Dosage: 30 MG
     Dates: start: 2016
  18. DIHYDROCODEINE [Concomitant]
     Active Substance: DIHYDROCODEINE
     Dosage: 30 MG
     Dates: start: 2017
  19. DIHYDROCODEINE [Concomitant]
     Active Substance: DIHYDROCODEINE
     Dosage: 30 MG
     Dates: start: 2018
  20. DIHYDROCODEINE [Concomitant]
     Active Substance: DIHYDROCODEINE
     Dosage: 30 MG
     Dates: start: 2019
  21. ANUSOL NOS [Concomitant]
     Active Substance: BALSAM PERU\BENZYL BENZOATE\BISMUTH HYDROXIDE\BISMUTH SUBGALLATE\HYDROCORTISONE ACETATE\ZINC OXIDE
     Dates: start: 2012
  22. TESTOSTERONE [Concomitant]
     Active Substance: TESTOSTERONE
     Dosage: 2 PERCENT
     Dates: start: 2012
  23. TESTOSTERONE [Concomitant]
     Active Substance: TESTOSTERONE
     Dosage: 2 PERCENT
     Dates: start: 2013
  24. TESTOSTERONE [Concomitant]
     Active Substance: TESTOSTERONE
     Dosage: 2 PERCENT
     Dates: start: 2014
  25. TESTOSTERONE [Concomitant]
     Active Substance: TESTOSTERONE
     Dates: start: 2015
  26. TESTOSTERONE [Concomitant]
     Active Substance: TESTOSTERONE
     Dosage: 2 PERCENT
     Dates: start: 2016
  27. TESTOSTERONE [Concomitant]
     Active Substance: TESTOSTERONE
     Dosage: 2 PERCENT
     Dates: start: 2017
  28. TESTOSTERONE [Concomitant]
     Active Substance: TESTOSTERONE
     Dosage: 2 PERCENT
     Dates: start: 2018
  29. TESTOSTERONE [Concomitant]
     Active Substance: TESTOSTERONE
     Dosage: 2 PERCENT
     Dates: start: 2019
  30. LANSOPRAZOLE [Concomitant]
     Active Substance: LANSOPRAZOLE
     Dosage: 30 MG
     Dates: start: 2013
  31. LANSOPRAZOLE [Concomitant]
     Active Substance: LANSOPRAZOLE
     Dosage: 30 MG
     Dates: start: 2014
  32. LANSOPRAZOLE [Concomitant]
     Active Substance: LANSOPRAZOLE
     Dates: start: 2015
  33. LANSOPRAZOLE [Concomitant]
     Active Substance: LANSOPRAZOLE
     Dosage: 30 MG
     Dates: start: 2016
  34. LANSOPRAZOLE [Concomitant]
     Active Substance: LANSOPRAZOLE
     Dosage: 30 MG
     Dates: start: 2017
  35. LANSOPRAZOLE [Concomitant]
     Active Substance: LANSOPRAZOLE
     Dosage: 30 MG
     Dates: start: 2018
  36. LANSOPRAZOLE [Concomitant]
     Active Substance: LANSOPRAZOLE
     Dosage: 30 MG
     Dates: start: 2019
  37. NAPROXEN [Concomitant]
     Active Substance: NAPROXEN
     Dosage: 250 MG
     Dates: start: 2013
  38. NAPROXEN [Concomitant]
     Active Substance: NAPROXEN
     Dates: start: 2014
  39. NAPROXEN [Concomitant]
     Active Substance: NAPROXEN
     Dates: start: 2015
  40. NAPROXEN [Concomitant]
     Active Substance: NAPROXEN
     Dates: start: 2016
  41. NAPROXEN [Concomitant]
     Active Substance: NAPROXEN
     Dates: start: 2017
  42. NAPROXEN [Concomitant]
     Active Substance: NAPROXEN
     Dates: start: 2018
  43. MOVICOL [Concomitant]
     Active Substance: POLYETHYLENE GLYCOL 3350\POTASSIUM CHLORIDE\SODIUM BICARBONATE\SODIUM CHLORIDE
     Dates: start: 2013
  44. MOVICOL [Concomitant]
     Active Substance: POLYETHYLENE GLYCOL 3350\POTASSIUM CHLORIDE\SODIUM BICARBONATE\SODIUM CHLORIDE
     Dates: start: 2014
  45. PRO ZERO [Concomitant]
     Dates: start: 2013
  46. PRO ZERO [Concomitant]
     Dates: start: 2014
  47. PRO ZERO [Concomitant]
     Dates: start: 2015
  48. RISEDRONATE SODIUM [Concomitant]
     Active Substance: RISEDRONATE SODIUM
     Dosage: 35 MG
     Dates: start: 2013
  49. RISEDRONATE SODIUM [Concomitant]
     Active Substance: RISEDRONATE SODIUM
     Dosage: 35 MG
     Dates: start: 2014
  50. RISEDRONATE SODIUM [Concomitant]
     Active Substance: RISEDRONATE SODIUM
     Dates: start: 2015
  51. RISEDRONATE SODIUM [Concomitant]
     Active Substance: RISEDRONATE SODIUM
     Dosage: 35 MG
     Dates: start: 2016
  52. RAMIPRIL [Concomitant]
     Active Substance: RAMIPRIL
     Dosage: 5 MG
     Dates: start: 2014
  53. RAMIPRIL [Concomitant]
     Active Substance: RAMIPRIL
     Dates: start: 2015
  54. RAMIPRIL [Concomitant]
     Active Substance: RAMIPRIL
     Dosage: 5MG
     Dates: start: 2016
  55. RAMIPRIL [Concomitant]
     Active Substance: RAMIPRIL
     Dosage: 5 MG
     Dates: start: 2017
  56. RAMIPRIL [Concomitant]
     Active Substance: RAMIPRIL
     Dosage: 5 MG
     Dates: start: 2018
  57. RAMIPRIL [Concomitant]
     Active Substance: RAMIPRIL
     Dosage: 5 MG
     Dates: start: 2019
  58. QUININE SULFATE [Concomitant]
     Active Substance: QUININE SULFATE
     Dates: start: 2015
  59. QUININE SULFATE [Concomitant]
     Active Substance: QUININE SULFATE
     Dosage: 30 MG
     Dates: start: 2016
  60. QUININE SULFATE [Concomitant]
     Active Substance: QUININE SULFATE
     Dosage: 300 MG
     Dates: start: 2017
  61. QUININE SULFATE [Concomitant]
     Active Substance: QUININE SULFATE
     Dosage: 300 MG
     Dates: start: 2018
  62. QUININE SULFATE [Concomitant]
     Active Substance: QUININE SULFATE
     Dosage: 300 MG
     Dates: start: 2019
  63. CALCIUM CARBONATE\CHOLECALCIFEROL [Concomitant]
     Active Substance: CALCIUM CARBONATE\CHOLECALCIFEROL
     Dates: start: 2015
  64. CALCIUM CARBONATE\CHOLECALCIFEROL [Concomitant]
     Active Substance: CALCIUM CARBONATE\CHOLECALCIFEROL
     Dates: start: 2016
  65. CALCIUM CARBONATE\CHOLECALCIFEROL [Concomitant]
     Active Substance: CALCIUM CARBONATE\CHOLECALCIFEROL
     Dates: start: 2017
  66. CALCIUM CARBONATE\CHOLECALCIFEROL [Concomitant]
     Active Substance: CALCIUM CARBONATE\CHOLECALCIFEROL
     Dates: start: 2018
  67. CALCIUM CARBONATE\CHOLECALCIFEROL [Concomitant]
     Active Substance: CALCIUM CARBONATE\CHOLECALCIFEROL
     Dates: start: 2019
  68. POLYETHYLENE GLYCOLS [Concomitant]
     Active Substance: POLYETHYLENE GLYCOLS
     Dates: start: 2015
  69. POLYETHYLENE GLYCOLS [Concomitant]
     Active Substance: POLYETHYLENE GLYCOLS
     Dates: start: 2016
  70. POLYETHYLENE GLYCOLS [Concomitant]
     Active Substance: POLYETHYLENE GLYCOLS
     Dates: start: 2017
  71. POLYETHYLENE GLYCOLS [Concomitant]
     Active Substance: POLYETHYLENE GLYCOLS
     Dates: start: 2018
  72. APIXABAN [Concomitant]
     Active Substance: APIXABAN
     Dosage: 5 MG
     Dates: start: 2016
  73. APIXABAN [Concomitant]
     Active Substance: APIXABAN
     Dates: start: 2017
  74. APIXABAN [Concomitant]
     Active Substance: APIXABAN
     Dates: start: 2018
  75. APIXABAN [Concomitant]
     Active Substance: APIXABAN
     Dates: start: 2019
  76. KIRIN [Concomitant]
     Dates: start: 2017
  77. KIRIN [Concomitant]
     Dates: start: 2018
  78. BISOPROLOL [Concomitant]
     Active Substance: BISOPROLOL
     Dates: start: 2017
  79. BISOPROLOL [Concomitant]
     Active Substance: BISOPROLOL
     Dosage: 2.5 MG
     Dates: start: 2018
  80. BISOPROLOL [Concomitant]
     Active Substance: BISOPROLOL
     Dosage: 2.5 MG
     Dates: start: 2019
  81. DENOSUMAB [Concomitant]
     Active Substance: DENOSUMAB
     Dates: start: 2017
  82. DENOSUMAB [Concomitant]
     Active Substance: DENOSUMAB
     Dates: start: 2018
  83. DENOSUMAB [Concomitant]
     Active Substance: DENOSUMAB
     Dosage: 60 MG
     Dates: start: 2019

REACTIONS (5)
  - Lenticular opacities [Not Recovered/Not Resolved]
  - Cataract cortical [Unknown]
  - Visual impairment [Not Recovered/Not Resolved]
  - Meibomian gland dysfunction [Not Recovered/Not Resolved]
  - Amino acid level increased [Not Recovered/Not Resolved]

NARRATIVE: CASE EVENT DATE: 20130101
